FAERS Safety Report 16728230 (Version 1)
Quarter: 2019Q3

REPORT INFORMATION
  Report Type: Spontaneous
  Country: US (occurrence: US)
  Receive Date: 20190704
  Receipt Date: 20190704
  Transmission Date: 20191005
  Serious: Yes (Hospitalization)
  Sender: FDA-Public Use
  Company Number: None

PATIENT
  Age: 25 Year
  Sex: Male
  Weight: 80.3 kg

DRUGS (5)
  1. VINCRISTINE SULFATE. [Suspect]
     Active Substance: VINCRISTINE SULFATE
     Dates: end: 20190611
  2. CYTARABINE. [Suspect]
     Active Substance: CYTARABINE
     Dates: end: 20190621
  3. ONCASPAR [Suspect]
     Active Substance: PEGASPARGASE
     Dates: end: 20190604
  4. METHOTREXATE. [Suspect]
     Active Substance: METHOTREXATE
     Dates: end: 20190622
  5. CYCLOPHOSPHAMIDE. [Suspect]
     Active Substance: CYCLOPHOSPHAMIDE
     Dates: end: 20190618

REACTIONS (14)
  - Hypophagia [None]
  - Brain oedema [None]
  - Pulmonary artery thrombosis [None]
  - Product dose omission [None]
  - Vomiting [None]
  - Intracranial pressure increased [None]
  - Deep vein thrombosis [None]
  - Drug ineffective [None]
  - Metabolic disorder [None]
  - Cerebral ischaemia [None]
  - Brain hypoxia [None]
  - Infection [None]
  - Headache [None]
  - Autoimmune disorder [None]

NARRATIVE: CASE EVENT DATE: 20190609
